FAERS Safety Report 4679273-6 (Version None)
Quarter: 2005Q2

REPORT INFORMATION
  Report Type: 
  Country: None (occurrence: None)
  Receive Date: 20050531
  Receipt Date: 20050531
  Transmission Date: 20051028
  Serious: Yes (Other)
  Sender: FDA-Public Use
  Company Number: None

PATIENT
  Age: 45 Year
  Sex: Male
  Weight: 61.2356 kg

DRUGS (2)
  1. VIAGRA [Suspect]
     Indication: ERECTILE DYSFUNCTION
     Dosage: 1 PRN
  2. VIAGRA [Suspect]
     Indication: SPINAL CORD INJURY
     Dosage: 1 PRN

REACTIONS (1)
  - VISUAL ACUITY REDUCED [None]
